FAERS Safety Report 8287541-4 (Version None)
Quarter: 2012Q2

REPORT INFORMATION
  Report Type: 
  Country: None (occurrence: None)
  Receive Date: 20120416
  Receipt Date: 20120410
  Transmission Date: 20120825
  Serious: Yes (Life-Threatening)
  Sender: FDA-Public Use
  Company Number: FR-ASTRAZENECA-2012SE23543

PATIENT
  Age: 22381 Day
  Sex: Male

DRUGS (6)
  1. DIPRIVAN [Suspect]
     Indication: ANAESTHESIA
     Route: 042
     Dates: start: 20110415, end: 20110415
  2. TRACRIUM [Concomitant]
     Indication: ANAESTHESIA
     Dates: start: 20110415, end: 20110415
  3. CELOCURINE [Suspect]
     Indication: ANAESTHESIA
     Route: 042
     Dates: start: 20110415, end: 20110415
  4. TAZOCILLINE [Suspect]
     Indication: ANAESTHESIA
     Route: 042
     Dates: start: 20110415, end: 20110415
  5. SUFENTANIL CITRATE [Concomitant]
     Indication: ANAESTHESIA
     Dates: start: 20110415, end: 20110415
  6. OMEPRAZOLE [Concomitant]
     Route: 048

REACTIONS (1)
  - SHOCK [None]
